FAERS Safety Report 12442107 (Version 1)
Quarter: 2016Q2

REPORT INFORMATION
  Report Type: Spontaneous
  Country: US (occurrence: None)
  Receive Date: 20160606
  Receipt Date: 20160606
  Transmission Date: 20160815
  Serious: Yes (Hospitalization)
  Sender: FDA-Public Use
  Company Number: None

PATIENT
  Age: 68 Year
  Sex: Male
  Weight: 91.7 kg

DRUGS (1)
  1. METFORMIN [Suspect]
     Active Substance: METFORMIN HYDROCHLORIDE
     Indication: DIABETES MELLITUS
     Route: 048
     Dates: start: 20110320, end: 20160229

REACTIONS (29)
  - Dizziness [None]
  - Nausea [None]
  - Pain in extremity [None]
  - Fall [None]
  - Abnormal loss of weight [None]
  - Melaena [None]
  - Chest pain [None]
  - Neck pain [None]
  - Abdominal pain [None]
  - Haematuria [None]
  - Diarrhoea [None]
  - Blood lactic acid increased [None]
  - Blood glucose increased [None]
  - Hyperhidrosis [None]
  - Arthralgia [None]
  - Rash [None]
  - Chills [None]
  - Peripheral swelling [None]
  - Back pain [None]
  - Dysuria [None]
  - Orthopnoea [None]
  - Polyuria [None]
  - Acute kidney injury [None]
  - Polydipsia [None]
  - Blood creatine increased [None]
  - Vomiting [None]
  - Pain in jaw [None]
  - Musculoskeletal pain [None]
  - Loss of consciousness [None]

NARRATIVE: CASE EVENT DATE: 20160229
